FAERS Safety Report 6251939-6 (Version None)
Quarter: 2009Q2

REPORT INFORMATION
  Report Type: 
  Country: None (occurrence: None)
  Receive Date: 20090630
  Receipt Date: 20090626
  Transmission Date: 20091009
  Serious: Yes (Death, Hospitalization, Other)
  Sender: FDA-Public Use
  Company Number: PHHY2009BR26111

PATIENT
  Sex: Male

DRUGS (4)
  1. FORASEQ [Suspect]
     Indication: EMPHYSEMA
     Dosage: UNK
     Dates: start: 20020101
  2. MONOCORDIL [Concomitant]
  3. AAS [Concomitant]
  4. SPIRIVA [Concomitant]
     Dosage: 1 DF DAILY
     Dates: start: 20020101

REACTIONS (3)
  - DYSPNOEA [None]
  - EMPHYSEMA [None]
  - INFECTION [None]
